FAERS Safety Report 6425436-9 (Version None)
Quarter: 2009Q4

REPORT INFORMATION
  Report Type: 
  Country: None (occurrence: None)
  Receive Date: 20091103
  Receipt Date: 20091023
  Transmission Date: 20100525
  Serious: Yes (Other)
  Sender: FDA-Public Use
  Company Number: JP-PFIZER INC-2009285685

PATIENT
  Age: 4 Year
  Sex: Male
  Weight: 18.2 kg

DRUGS (1)
  1. SOLU-MEDROL [Suspect]
     Indication: ASTHMA
     Dosage: 30 MG / DAY
     Dates: start: 20091016, end: 20091016

REACTIONS (1)
  - ANAPHYLACTIC SHOCK [None]
